FAERS Safety Report 21194409 (Version 1)
Quarter: 2022Q3

REPORT INFORMATION
  Report Type: Spontaneous
  Country: US (occurrence: None)
  Receive Date: 20220809
  Receipt Date: 20220809
  Transmission Date: 20221026
  Serious: Yes (Hospitalization, Disabling, Other)
  Sender: FDA-Public Use
  Company Number: None

PATIENT
  Age: 21 Year
  Sex: Female
  Weight: 55.35 kg

DRUGS (9)
  1. MAGNESIUM CITRATE SALINE LAXATIVE [Suspect]
     Active Substance: MAGNESIUM CITRATE
     Indication: Constipation
     Dosage: FREQUENCY : AS NEEDED;?
     Route: 048
  2. HYDROXYZINE [Concomitant]
     Active Substance: HYDROXYZINE HYDROCHLORIDE
  3. XOLAIR [Concomitant]
     Active Substance: OMALIZUMAB
  4. LEVOCETIRIZINE [Concomitant]
     Active Substance: LEVOCETIRIZINE
  5. FAMOTIDINE [Concomitant]
     Active Substance: FAMOTIDINE
  6. TRAZODONE [Concomitant]
     Active Substance: TRAZODONE HYDROCHLORIDE
  7. CEPHALEXIN [Concomitant]
     Active Substance: CEPHALEXIN
  8. BIOTIN [Concomitant]
     Active Substance: BIOTIN
  9. OREGANO OIL [Concomitant]

REACTIONS (9)
  - Mast cell activation syndrome [None]
  - Chest pain [None]
  - Hypersensitivity [None]
  - Cellulitis [None]
  - Candida infection [None]
  - Bacterial infection [None]
  - Depression [None]
  - Anxiety [None]
  - Product complaint [None]

NARRATIVE: CASE EVENT DATE: 20210726
